FAERS Safety Report 21965619 (Version 1)
Quarter: 2023Q1

REPORT INFORMATION
  Report Type: Other
  Country: None (occurrence: CN)
  Receive Date: 20230208
  Receipt Date: 20230208
  Transmission Date: 20230418
  Serious: Yes (Other)
  Sender: FDA-Public Use
  Company Number: CN-Jiangsu Hengrui Medicine Co., Ltd.-2137651

PATIENT
  Age: 48 Year
  Sex: Female
  Weight: 60 kg

DRUGS (1)
  1. CISATRACURIUM BESYLATE [Suspect]
     Active Substance: CISATRACURIUM BESYLATE
     Indication: Muscle relaxant therapy
     Dates: start: 20230105, end: 20230107

REACTIONS (1)
  - Carbon dioxide increased [Recovering/Resolving]

NARRATIVE: CASE EVENT DATE: 20230106
